FAERS Safety Report 7250440-0 (Version None)
Quarter: 2011Q1

REPORT INFORMATION
  Report Type: 
  Country: None (occurrence: None)
  Receive Date: 20110128
  Receipt Date: 20110118
  Transmission Date: 20110831
  Serious: Yes (Death, Hospitalization)
  Sender: FDA-Public Use
  Company Number: CN-WATSON-2011-00879

PATIENT
  Age: 39 Year
  Sex: Female

DRUGS (2)
  1. SHUANGHUANGLIAN [Suspect]
     Indication: ASTHMA
     Dosage: 30 ML SINGLE
  2. DEXAMETHASONE [Suspect]
     Indication: ASTHMA
     Dosage: 10 MG, UNKNOWN
     Route: 042

REACTIONS (2)
  - EOSINOPHILIC PNEUMONIA [None]
  - ANAPHYLACTIC REACTION [None]
